FAERS Safety Report 17071071 (Version 1)
Quarter: 2019Q4

REPORT INFORMATION
  Report Type: Spontaneous
  Country: US (occurrence: US)
  Receive Date: 20191025
  Receipt Date: 20191025
  Transmission Date: 20200122
  Serious: Yes (Hospitalization)
  Sender: FDA-Public Use
  Company Number: None

PATIENT
  Sex: Female

DRUGS (16)
  1. LOVASTATIN. [Concomitant]
     Active Substance: LOVASTATIN
  2. VITAMIN B12 [Concomitant]
     Active Substance: CYANOCOBALAMIN
  3. HYDROCHLOROT [Concomitant]
     Active Substance: HYDROCHLOROTHIAZIDE
  4. OMEGA-3 ACIDS [Concomitant]
     Active Substance: OMEGA-3 FATTY ACIDS
  5. OMEPRAZOLE. [Concomitant]
     Active Substance: OMEPRAZOLE
  6. PRAVASATIN [Concomitant]
  7. YEAST BALANC [Concomitant]
  8. GABAPENTIN. [Concomitant]
     Active Substance: GABAPENTIN
  9. BD SWAB REG PAD SINGL USE [Concomitant]
  10. CALCIUM/VT D [Concomitant]
  11. LINSINOPRIL [Concomitant]
     Active Substance: LISINOPRIL
  12. VERAPAMIL [Concomitant]
     Active Substance: VERAPAMIL HYDROCHLORIDE
  13. VITAMIN D [Concomitant]
     Active Substance: VITAMIN D NOS
  14. TYLENOL [Concomitant]
     Active Substance: ACETAMINOPHEN
  15. STELARA [Suspect]
     Active Substance: USTEKINUMAB
     Indication: PSORIASIS
     Dosage: ?          OTHER FREQUENCY:3 MONTHS;?
     Route: 058
     Dates: start: 20180405
  16. OYST SHELL/D [Concomitant]

REACTIONS (4)
  - Carpal tunnel syndrome [None]
  - Rheumatoid arthritis [None]
  - Tendonitis [None]
  - Psoriasis [None]
